FAERS Safety Report 7892594-9 (Version None)
Quarter: 2011Q4

REPORT INFORMATION
  Report Type: 
  Country: None (occurrence: None)
  Receive Date: 20111102
  Receipt Date: 20111021
  Transmission Date: 20120403
  Serious: Yes (Other)
  Sender: FDA-Public Use
  Company Number: 2011MA015577

PATIENT
  Age: 16 Year
  Sex: Male

DRUGS (2)
  1. HYOSCINE HBR HYT [Suspect]
     Indication: SALIVARY HYPERSECRETION
     Dosage: ;PO
     Route: 048
     Dates: start: 20020101, end: 20110916
  2. METOCLOPRAMIDE [Suspect]
     Indication: VOMITING
     Dosage: ;PRN;

REACTIONS (8)
  - ERUCTATION [None]
  - APHASIA [None]
  - APPLICATION SITE IRRITATION [None]
  - HEADACHE [None]
  - APPLICATION SITE RASH [None]
  - VOMITING [None]
  - TOOTHACHE [None]
  - APPLICATION SITE PRURITUS [None]
